FAERS Safety Report 7530063-6 (Version None)
Quarter: 2011Q2

REPORT INFORMATION
  Report Type: 
  Country: None (occurrence: None)
  Receive Date: 20110607
  Receipt Date: 20110127
  Transmission Date: 20111010
  Serious: Yes (Hospitalization)
  Sender: FDA-Public Use
  Company Number: US-BAYER-201037609NA

PATIENT
  Age: 27 Year
  Sex: Female
  Weight: 95.238 kg

DRUGS (4)
  1. YAZ [Suspect]
     Indication: PRODUCT USED FOR UNKNOWN INDICATION
     Dosage: UNK
     Route: 048
     Dates: start: 20060815, end: 20070419
  2. YASMIN [Suspect]
     Indication: PRODUCT USED FOR UNKNOWN INDICATION
     Route: 048
     Dates: start: 20060815
  3. MOTRIN [Concomitant]
  4. SYNTHROID [Concomitant]

REACTIONS (7)
  - CHOLECYSTITIS CHRONIC [None]
  - SCAR [None]
  - CHOLELITHIASIS [None]
  - EMOTIONAL DISTRESS [None]
  - GALLBLADDER INJURY [None]
  - PAIN [None]
  - CHOLECYSTITIS ACUTE [None]
